FAERS Safety Report 9387732 (Version 2)
Quarter: 2013Q3

REPORT INFORMATION
  Report Type: Spontaneous
  Country: JP (occurrence: None)
  Receive Date: 20130703
  Receipt Date: 20130715
  Transmission Date: 20140515
  Serious: Yes (Hospitalization)
  Sender: FDA-Public Use
  Company Number: DSJ-2013-14508

PATIENT
  Age: 72 Year
  Sex: Male
  Weight: 60.2 kg

DRUGS (13)
  1. OLMETEC [Suspect]
     Indication: HYPERTENSION
     Route: 048
     Dates: start: 20120329, end: 20130618
  2. CS-747S [Suspect]
     Indication: ISCHAEMIC STROKE
     Dosage: BLINDED (1 IN 1 D)
     Route: 048
     Dates: start: 20120912
  3. NORVASC OD [Suspect]
     Indication: HYPERTENSION
     Route: 048
     Dates: start: 20120329, end: 20130618
  4. LIVALO [Concomitant]
  5. TAKEPRON [Concomitant]
  6. JANUVIA [Concomitant]
  7. AMARYL [Concomitant]
  8. METGLUCO [Concomitant]
  9. SEIBULE [Concomitant]
  10. MINZAIN [Concomitant]
  11. MYSER [Concomitant]
  12. MS OHSHIPPU [Concomitant]
  13. IDOMETHINE [Concomitant]

REACTIONS (3)
  - Hypotension [None]
  - Dizziness [None]
  - Blood pressure inadequately controlled [None]
